FAERS Safety Report 17423079 (Version 2)
Quarter: 2020Q1

REPORT INFORMATION
  Report Type: Report from Study
  Country: CA (occurrence: CA)
  Receive Date: 20200216
  Receipt Date: 20200221
  Transmission Date: 20200409
  Serious: Yes (Hospitalization)
  Sender: FDA-Public Use
  Company Number: CA-BIOGEN-2020BI00838564

PATIENT
  Age: 70 Year
  Sex: Female

DRUGS (1)
  1. FAMPYRA [Suspect]
     Active Substance: DALFAMPRIDINE
     Indication: PRODUCT USED FOR UNKNOWN INDICATION
     Route: 048
     Dates: start: 20180829

REACTIONS (2)
  - Influenza [Not Recovered/Not Resolved]
  - Enteritis infectious [Unknown]

NARRATIVE: CASE EVENT DATE: 20200204
